FAERS Safety Report 8936057 (Version 1)
Quarter: 2012Q4

REPORT INFORMATION
  Report Type: Spontaneous
  Country: US (occurrence: None)
  Receive Date: 20121128
  Receipt Date: 20121128
  Transmission Date: 20130627
  Serious: No
  Sender: FDA-Public Use
  Company Number: None

PATIENT
  Age: 66 Year
  Sex: Male
  Weight: 76.2 kg

DRUGS (1)
  1. ACETAMINOPHEN/HYDROCODONE [Suspect]
     Indication: LOW BACK PAIN
     Route: 048
     Dates: start: 20071106

REACTIONS (6)
  - Cerebral infarction [None]
  - Nausea [None]
  - Vomiting [None]
  - Productive cough [None]
  - Cough [None]
  - Sputum discoloured [None]
